FAERS Safety Report 15826351 (Version 1)
Quarter: 2019Q1

REPORT INFORMATION
  Report Type: Spontaneous
  Country: IT (occurrence: IT)
  Receive Date: 20190115
  Receipt Date: 20190115
  Transmission Date: 20190417
  Serious: Yes (Hospitalization)
  Sender: FDA-Public Use
  Company Number: PHHY2019IT002959

PATIENT
  Age: 41 Year
  Sex: Female

DRUGS (2)
  1. METHYLPREDNISOLONE. [Concomitant]
     Active Substance: METHYLPREDNISOLONE
     Indication: PSORIATIC ARTHROPATHY
     Dosage: 4 MG, QD (LOW DOSE)
     Route: 065
  2. METHOTREXATE. [Suspect]
     Active Substance: METHOTREXATE
     Indication: PSORIATIC ARTHROPATHY
     Dosage: (LOW DOSE)
     Route: 058

REACTIONS (3)
  - Muscular weakness [Recovered/Resolved]
  - Paraparesis [Recovered/Resolved]
  - Toxicity to various agents [Unknown]
